FAERS Safety Report 6315698-0 (Version None)
Quarter: 2009Q3

REPORT INFORMATION
  Report Type: 
  Country: None (occurrence: None)
  Receive Date: 20090818
  Receipt Date: 20090813
  Transmission Date: 20100115
  Serious: Yes (Hospitalization, Disabling)
  Sender: FDA-Public Use
  Company Number: 1000008207

PATIENT
  Age: 57 Year
  Sex: Male

DRUGS (2)
  1. BYSTOLIC [Suspect]
     Indication: HYPERTENSION
     Dosage: ORAL
     Route: 048
     Dates: start: 20090401, end: 20090804
  2. INSULIN [Concomitant]

REACTIONS (8)
  - CHEST PAIN [None]
  - DIARRHOEA [None]
  - GANGRENE [None]
  - HEADACHE [None]
  - LEG AMPUTATION [None]
  - LOCALISED INFECTION [None]
  - NAUSEA [None]
  - TOE AMPUTATION [None]
